FAERS Safety Report 8092548-6 (Version None)
Quarter: 2012Q1

REPORT INFORMATION
  Report Type: 
  Country: None (occurrence: None)
  Receive Date: 20120128
  Receipt Date: 20110823
  Transmission Date: 20120608
  Serious: No
  Sender: FDA-Public Use
  Company Number: US-ABBOTT-11P-163-0849902-00

PATIENT
  Sex: Female
  Weight: 56.75 kg

DRUGS (6)
  1. DIOVAN [Concomitant]
     Indication: HYPERTENSION
  2. PRAVASTATIN [Concomitant]
     Indication: HYPERLIPIDAEMIA
  3. XANAX [Concomitant]
     Indication: PANIC ATTACK
  4. ATENOLOL [Concomitant]
     Indication: HYPERTENSION
  5. LEVOXYL [Concomitant]
     Indication: HYPOTHYROIDISM
  6. HUMIRA [Suspect]
     Indication: PSORIATIC ARTHROPATHY
     Dates: start: 20110601

REACTIONS (1)
  - HEAT RASH [None]
